FAERS Safety Report 8496538-0 (Version None)
Quarter: 2012Q3

REPORT INFORMATION
  Report Type: 
  Country: None (occurrence: None)
  Receive Date: 20120709
  Receipt Date: 20120628
  Transmission Date: 20120928
  Serious: Yes (Hospitalization, Other)
  Sender: FDA-Public Use
  Company Number: FR-ELI_LILLY_AND_COMPANY-FR201206009032

PATIENT
  Sex: Female
  Weight: 61 kg

DRUGS (9)
  1. EMEND [Concomitant]
     Dosage: 80 MG, QD ON DAYS 2 + 3
     Dates: start: 20120522, end: 20120523
  2. CORTICOSTEROID NOS [Concomitant]
     Indication: ANTIEMETIC SUPPORTIVE CARE
  3. ONDANSETRON HCL [Concomitant]
     Indication: ANTIEMETIC SUPPORTIVE CARE
     Dosage: 8 MG, BID FOR 3 DAYS
     Dates: start: 20120521, end: 20120523
  4. CISPLATIN [Concomitant]
     Dosage: 75 MG/M2, UNK
     Dates: start: 20120521, end: 20120521
  5. EMEND [Concomitant]
     Indication: ANTIEMETIC SUPPORTIVE CARE
     Dosage: 125 MG, QD ON DAY 1
     Dates: start: 20120521, end: 20120521
  6. PREDNISONE [Concomitant]
     Dosage: 20 MG, QD
     Dates: end: 20120523
  7. FOLIC ACID [Concomitant]
     Dosage: 0.4 MG, QD
  8. OXYGEN [Concomitant]
     Dosage: 3 L, UNK
  9. ALIMTA [Suspect]
     Indication: LUNG ADENOCARCINOMA
     Dosage: 500 MG/M2, UNK
     Route: 042
     Dates: start: 20120521, end: 20120521

REACTIONS (5)
  - RASH MACULAR [None]
  - HYPOTENSION [None]
  - INTERSTITIAL LUNG DISEASE [None]
  - RENAL FAILURE ACUTE [None]
  - ACUTE RESPIRATORY DISTRESS SYNDROME [None]
